FAERS Safety Report 15289622 (Version 1)
Quarter: 2018Q3

REPORT INFORMATION
  Report Type: Spontaneous
  Country: US (occurrence: US)
  Receive Date: 20180817
  Receipt Date: 20180817
  Transmission Date: 20181010
  Serious: No
  Sender: FDA-Public Use
  Company Number: US-MYLANLABS-2018M1060177

PATIENT
  Age: 64 Year
  Sex: Female
  Weight: 44 kg

DRUGS (6)
  1. LIDOCAINE PATCH [Suspect]
     Active Substance: LIDOCAINE
     Indication: RHEUMATOID ARTHRITIS
  2. SYNTHROID [Concomitant]
     Active Substance: LEVOTHYROXINE SODIUM
     Indication: THYROID DISORDER
     Dosage: UNK (MONDAY THROUGH FRIDAY)
  3. LIDOCAINE PATCH [Suspect]
     Active Substance: LIDOCAINE
     Indication: SCIATICA
  4. SYNTHROID [Concomitant]
     Active Substance: LEVOTHYROXINE SODIUM
     Indication: THYROID DISORDER
     Dosage: UNK (SATURDAY AND SUNDAY)
  5. DILTIAZEM. [Concomitant]
     Active Substance: DILTIAZEM
     Indication: HYPERTENSION
     Dosage: 120 MG, UNK
  6. LIDOCAINE PATCH [Suspect]
     Active Substance: LIDOCAINE
     Indication: OSTEOARTHRITIS
     Dosage: 5 %, UNK
     Route: 003
     Dates: start: 20180802

REACTIONS (5)
  - Insomnia [Not Recovered/Not Resolved]
  - Drug ineffective for unapproved indication [Not Recovered/Not Resolved]
  - Product quality issue [Not Recovered/Not Resolved]
  - Product use in unapproved indication [Not Recovered/Not Resolved]
  - Product adhesion issue [Not Recovered/Not Resolved]

NARRATIVE: CASE EVENT DATE: 20180802
